FAERS Safety Report 11883058 (Version 2)
Quarter: 2016Q3

REPORT INFORMATION
  Report Type: Report from Study
  Country: US (occurrence: US)
  Receive Date: 20151231
  Receipt Date: 20160822
  Transmission Date: 20161109
  Serious: Yes (Death, Hospitalization)
  Sender: FDA-Public Use
  Company Number: US-AMGEN-USACT2014043385

PATIENT
  Age: 27 Year
  Sex: Female

DRUGS (26)
  1. INOTUZUMAB OZOGAMICIN [Suspect]
     Active Substance: INOTUZUMAB OZOGAMICIN
     Indication: ACUTE LYMPHOCYTIC LEUKAEMIA
     Dosage: 1.8 MG/M2, (3 MG) DAY 03 (ONCE ON DAY 3)
     Route: 042
     Dates: start: 20140316, end: 20140316
  2. LACTULOSE. [Concomitant]
     Active Substance: LACTULOSE
     Dosage: UNK
  3. HYDRALAZINE [Concomitant]
     Active Substance: HYDRALAZINE HYDROCHLORIDE
     Dosage: UNK
  4. MESNA. [Suspect]
     Active Substance: MESNA
     Dosage: 498 MG, DAY 03, UNK
     Route: 042
     Dates: start: 20140316, end: 20140316
  5. DEXAMETHASONE. [Suspect]
     Active Substance: DEXAMETHASONE
     Dosage: 20 MG, DAY 04, UNK
     Route: 042
     Dates: start: 20140317, end: 20140317
  6. CEFEPIME [Concomitant]
     Active Substance: CEFEPIME HYDROCHLORIDE
     Dosage: UNK
  7. HYDROMORPHONE [Concomitant]
     Active Substance: HYDROMORPHONE
     Dosage: UNK
  8. LINEZOLID. [Concomitant]
     Active Substance: LINEZOLID
     Dosage: UNK
  9. DEXAMETHASONE. [Suspect]
     Active Substance: DEXAMETHASONE
     Indication: ACUTE LYMPHOCYTIC LEUKAEMIA
     Dosage: 20 MG, DAY 01, UNK
     Route: 042
     Dates: start: 20140314, end: 20140314
  10. DEXAMETHASONE. [Suspect]
     Active Substance: DEXAMETHASONE
     Dosage: 20 MG, DAY 02, UNK
     Route: 042
     Dates: start: 20140315, end: 20140315
  11. NALOXONE [Concomitant]
     Active Substance: NALOXONE
     Dosage: UNK
  12. METHOTREXATE SODIUM. [Suspect]
     Active Substance: METHOTREXATE SODIUM
     Indication: ACUTE LYMPHOCYTIC LEUKAEMIA
     Dosage: 12 MG, DAY 04, UNK
     Route: 037
     Dates: start: 20140317, end: 20140317
  13. CYCLOPHOSPHAMIDE. [Suspect]
     Active Substance: CYCLOPHOSPHAMIDE
     Indication: ACUTE LYMPHOCYTIC LEUKAEMIA
     Dosage: 249 MG, UNK, DAY 1: 249 MG (DAILY ON DAY 1-3)
     Route: 042
     Dates: start: 20140314, end: 20140314
  14. DEXAMETHASONE. [Suspect]
     Active Substance: DEXAMETHASONE
     Dosage: 20 MG, DAY 11, UNK
     Route: 042
     Dates: start: 20140324, end: 20140324
  15. MESNA. [Suspect]
     Active Substance: MESNA
     Dosage: 498 MG, DAY 02, UNK
     Route: 042
     Dates: start: 20140315, end: 20140315
  16. VINCRISTINE SULFATE. [Suspect]
     Active Substance: VINCRISTINE SULFATE
     Indication: ACUTE LYMPHOCYTIC LEUKAEMIA
     Dosage: 2 MG, DAY 02, UNK
     Route: 042
     Dates: start: 20140315, end: 20140315
  17. MESNA. [Suspect]
     Active Substance: MESNA
     Indication: ACUTE LYMPHOCYTIC LEUKAEMIA
     Dosage: 498 MG, DAY 01, UNK (300MG/M2)
     Route: 042
     Dates: start: 20140314, end: 20140314
  18. SENNA                              /00142201/ [Concomitant]
     Active Substance: SENNA LEAF
     Dosage: UNK
  19. METRONIDAZOLE. [Concomitant]
     Active Substance: METRONIDAZOLE
     Dosage: UNK
  20. VINCRISTINE SULFATE. [Suspect]
     Active Substance: VINCRISTINE SULFATE
     Dosage: 2 MG, UNK (ON DAY 2)
     Route: 042
     Dates: start: 20140322, end: 20140322
  21. HYDROCORTISONE. [Concomitant]
     Active Substance: HYDROCORTISONE
     Dosage: UNK
  22. PANTOPRAZOLE [Concomitant]
     Active Substance: PANTOPRAZOLE SODIUM
     Dosage: UNK
  23. ACYCLOVIR                          /00587301/ [Concomitant]
     Active Substance: ACYCLOVIR
     Dosage: UNK
  24. PEGFILGRASTIM [Suspect]
     Active Substance: PEGFILGRASTIM
     Indication: ACUTE LYMPHOCYTIC LEUKAEMIA
     Dosage: 6 MG, UNK, DAY 5
     Route: 058
     Dates: start: 20140318, end: 20140318
  25. DEXAMETHASONE. [Suspect]
     Active Substance: DEXAMETHASONE
     Dosage: 20 MG, DAY 03, UNK
     Route: 042
     Dates: start: 20140316, end: 20140316
  26. ESTRADIOL. [Concomitant]
     Active Substance: ESTRADIOL
     Dosage: UNK

REACTIONS (1)
  - Venoocclusive liver disease [Fatal]

NARRATIVE: CASE EVENT DATE: 20140331
